FAERS Safety Report 7703283-5 (Version None)
Quarter: 2011Q3

REPORT INFORMATION
  Report Type: 
  Country: None (occurrence: None)
  Receive Date: 20110817
  Receipt Date: 20110804
  Transmission Date: 20111222
  Serious: Yes (Other)
  Sender: FDA-Public Use
  Company Number: 2011ST000189

PATIENT
  Age: 14 Year

DRUGS (1)
  1. ADAGEN [Suspect]
     Indication: COMBINED IMMUNODEFICIENCY
     Dosage: QW;IM
     Route: 030
     Dates: start: 19890801

REACTIONS (2)
  - EPILEPSY [None]
  - GRAND MAL CONVULSION [None]
